FAERS Safety Report 8270040-3 (Version None)
Quarter: 2012Q2

REPORT INFORMATION
  Report Type: 
  Country: None (occurrence: None)
  Receive Date: 20120410
  Receipt Date: 20120404
  Transmission Date: 20120825
  Serious: Yes (Other)
  Sender: FDA-Public Use
  Company Number: AU-JNJFOC-20120402321

PATIENT
  Sex: Male

DRUGS (8)
  1. STELARA [Suspect]
     Route: 058
     Dates: start: 20101130
  2. STELARA [Suspect]
     Route: 058
     Dates: start: 20120113
  3. STELARA [Suspect]
     Route: 058
     Dates: start: 20100810
  4. STELARA [Suspect]
     Route: 058
     Dates: start: 20111107
  5. STELARA [Suspect]
     Route: 058
     Dates: start: 20110523
  6. STELARA [Suspect]
     Route: 058
     Dates: start: 20100907
  7. STELARA [Suspect]
     Indication: PRODUCT USED FOR UNKNOWN INDICATION
     Route: 058
     Dates: start: 20110301
  8. STELARA [Suspect]
     Route: 058
     Dates: start: 20110815

REACTIONS (1)
  - WITHDRAWAL SYNDROME [None]
